FAERS Safety Report 9281743 (Version 4)
Quarter: 2013Q4

REPORT INFORMATION
  Report Type: Spontaneous
  Country: US (occurrence: US)
  Receive Date: 20130510
  Receipt Date: 20131010
  Transmission Date: 20140711
  Serious: Yes (Hospitalization)
  Sender: FDA-Public Use
  Company Number: US-B.I. PHARMACEUTICALS,INC./RIDGEFIELD-2013-BI-12722BP

PATIENT
  Age: 75 Year
  Sex: Male
  Weight: 72.57 kg

DRUGS (14)
  1. PRADAXA [Suspect]
     Indication: ANTICOAGULANT THERAPY
     Dosage: 300 MG
     Route: 048
     Dates: start: 201103, end: 20120209
  2. ATAMET [Concomitant]
     Route: 048
     Dates: start: 2006
  3. CLOTRIMAZOLE [Concomitant]
     Route: 061
     Dates: start: 2010, end: 2012
  4. DILTIAZEM [Concomitant]
     Dates: start: 2010
  5. MULTAQ (DRONEDARONE) [Concomitant]
     Dosage: 400 MG
     Route: 048
     Dates: start: 2010
  6. IRON (FERROUS SULFATE) [Concomitant]
     Dosage: 325 MG
     Dates: start: 2010
  7. LASIX [Concomitant]
     Dates: start: 2008
  8. LOPRESSOR (METOPROLOL) [Concomitant]
     Dosage: 150 MG
     Route: 048
     Dates: start: 2001
  9. MIRAPEX [Concomitant]
     Dosage: 0.25 MG
     Dates: start: 2010
  10. NITROSTAT (NITROGLYCERIN) [Concomitant]
     Route: 060
     Dates: start: 2001
  11. NORVASC [Concomitant]
     Dosage: 5 MG
     Route: 048
     Dates: start: 2010
  12. DITROPAN XL [Concomitant]
     Dosage: 5 MG
  13. PLAVIX [Concomitant]
     Dosage: 37.5 MG
     Route: 048
  14. PRAVASTATIN [Concomitant]
     Dosage: 20 MG
     Route: 048

REACTIONS (6)
  - Microcytic anaemia [Unknown]
  - Gastrointestinal haemorrhage [Unknown]
  - Epistaxis [Unknown]
  - Rectal haemorrhage [Unknown]
  - Ulcer haemorrhage [Unknown]
  - Hypovolaemic shock [Unknown]
